FAERS Safety Report 20199358 (Version 1)
Quarter: 2021Q4

REPORT INFORMATION
  Report Type: Spontaneous
  Country: US (occurrence: None)
  Receive Date: 20211217
  Receipt Date: 20211217
  Transmission Date: 20220303
  Serious: No
  Sender: FDA-Public Use
  Company Number: 2021A878900

PATIENT
  Sex: Male

DRUGS (1)
  1. LYNPARZA [Suspect]
     Active Substance: OLAPARIB
     Indication: Prostatic disorder
     Dosage: 300 MILLIGRAM, BID
     Route: 048

REACTIONS (3)
  - Haemoglobin abnormal [Unknown]
  - White blood cell count abnormal [Unknown]
  - Fatigue [Unknown]
